FAERS Safety Report 18296438 (Version 1)
Quarter: 2020Q3

REPORT INFORMATION
  Report Type: Spontaneous
  Country: NL (occurrence: NL)
  Receive Date: 20200922
  Receipt Date: 20200922
  Transmission Date: 20201103
  Serious: Yes (Life-Threatening, Hospitalization)
  Sender: FDA-Public Use
  Company Number: NL-TEVA-2020-NL-1829003

PATIENT
  Age: 62 Year
  Sex: Female
  Weight: 59.1 kg

DRUGS (10)
  1. LEFLUNOMIDE TABLET 20MG / BRAND NAME NOT SPECIFIED [Suspect]
     Active Substance: LEFLUNOMIDE
     Indication: RHEUMATOID ARTHRITIS
     Dosage: 20 MILLIGRAM DAILY;
     Dates: start: 20190829, end: 20200727
  2. PANTOPRAZOL TABLET MSR 20MG / MAAGZUURTABLET PANTOPRAZOL HTP TABLET MS [Concomitant]
     Dosage: 40MG, THERAPY START DATE AND END DATE: ASKED BUT UNKNOWN
  3. CLOZAPINE TABLET 200MG / BRAND NAME NOT SPECIFIED [Concomitant]
     Dosage: REDUCED FROM 200 TO 100 MG,  THERAPY START DATE AND END DATE: ASKED BUT UNKNOWN
  4. VENLAFAXINE CAPSULE MGA 150MG / BRAND NAME NOT SPECIFIED [Concomitant]
     Dosage: 150 MG (MILLIGRAM), THERAPY START DATE AND END DATE: ASKED BUT UNKNOWN
  5. CALCIUMCARB/COLECALC KAUWTB 2,5G/800IE (1000MG CA) / CALCI CHEW D3 KAU [Concomitant]
     Dosage: 1.25G / 800EH, (1 DF) THERAPY START DATE AND END DATE: ASKED BUT UNKNOWN
  6. PROMETHAZINE TABLET OMHULD 25MG / BRAND NAME NOT SPECIFIED [Concomitant]
     Dosage: 25 MG (MILLIGRAM), THERAPY START DATE AND END DATE: ASKED BUT UNKNOWN
  7. CLOZAPINE TABLET 200MG / BRAND NAME NOT SPECIFIED [Concomitant]
     Dosage: 200 MG (MILLIGRAM), THERAPY START DATE AND END DATE: ASKED BUT UNKNOWN
  8. VENLAFAXINE CAPSULE MGA 150MG / BRAND NAME NOT SPECIFIED [Concomitant]
     Dosage: 37.5 MG (MILLIGRAM), THERAPY START DATE AND END DATE: ASKED BUT UNKNOWN
  9. TEMAZEPAM CAPSULE 20MG / BRAND NAME NOT SPECIFIED [Concomitant]
     Dosage: 20 MG (MILLIGRAM), THERAPY START DATE AND END DATE: ASKED BUT UNKNOWN
  10. LORAZEPAM TABLET 1MG / BRAND NAME NOT SPECIFIED [Concomitant]
     Dosage: 1 MG (MILLIGRAM), THERAPY START DATE AND END DATE: ASKED BUT UNKNOWN

REACTIONS (2)
  - Pancytopenia [Recovered/Resolved]
  - Infection [Unknown]

NARRATIVE: CASE EVENT DATE: 20200725
